FAERS Safety Report 5412131-8 (Version None)
Quarter: 2007Q3

REPORT INFORMATION
  Report Type: 
  Country: None (occurrence: None)
  Receive Date: 20070713
  Receipt Date: 20070330
  Transmission Date: 20080115
  Serious: No
  Sender: FDA-Public Use
  Company Number: 2007SP001163

PATIENT
  Age: 84 Year
  Sex: Male
  Weight: 97.5234 kg

DRUGS (9)
  1. LUNESTA [Suspect]
     Indication: INITIAL INSOMNIA
     Dosage: 3 MG; HS; ORAL, 1.5 MG; HS; ORAL, 3 MG; ORAL, 3 MG; HS; ORAL
     Route: 048
     Dates: start: 20070201, end: 20070201
  2. LUNESTA [Suspect]
     Indication: INITIAL INSOMNIA
     Dosage: 3 MG; HS; ORAL, 1.5 MG; HS; ORAL, 3 MG; ORAL, 3 MG; HS; ORAL
     Route: 048
     Dates: start: 20061101
  3. LUNESTA [Suspect]
     Indication: INITIAL INSOMNIA
     Dosage: 3 MG; HS; ORAL, 1.5 MG; HS; ORAL, 3 MG; ORAL, 3 MG; HS; ORAL
     Route: 048
     Dates: start: 20070101
  4. LUNESTA [Suspect]
     Indication: INITIAL INSOMNIA
     Dosage: 3 MG; HS; ORAL, 1.5 MG; HS; ORAL, 3 MG; ORAL, 3 MG; HS; ORAL
     Route: 048
     Dates: start: 20070201
  5. ROLAIDS [Concomitant]
  6. ASPIRIN [Concomitant]
  7. ATORVASTAATIN CALCIUM [Concomitant]
  8. ATENOLOL [Concomitant]
  9. FOLIC ACID [Concomitant]

REACTIONS (4)
  - DRUG EFFECT DECREASED [None]
  - DRUG INEFFECTIVE [None]
  - INITIAL INSOMNIA [None]
  - RESPIRATORY TRACT INFECTION [None]
